FAERS Safety Report 10229671 (Version 1)
Quarter: 2014Q2

REPORT INFORMATION
  Report Type: Spontaneous
  Country: US (occurrence: None)
  Receive Date: 20140610
  Receipt Date: 20140610
  Transmission Date: 20141212
  Serious: Yes (Life-Threatening, Disabling)
  Sender: FDA-Public Use
  Company Number: None

PATIENT
  Sex: Male
  Weight: 86.64 kg

DRUGS (11)
  1. PRIMATENE [Suspect]
     Indication: ASTHMA
     Route: 055
  2. PRIMATENE [Suspect]
     Route: 055
  3. MAGNESIUM [Concomitant]
     Indication: ASTHMA
  4. CALCIUM [Concomitant]
  5. ZINC [Concomitant]
  6. NONI JUICE [Concomitant]
  7. FISH OIL [Concomitant]
  8. KRILL OIL [Concomitant]
  9. VENTOLIN [Concomitant]
  10. SYMBICORT [Suspect]
  11. COMBIVENT [Concomitant]

REACTIONS (3)
  - Nausea [None]
  - Cardiac disorder [None]
  - Product quality issue [None]
